FAERS Safety Report 12772629 (Version 1)
Quarter: 2016Q3

REPORT INFORMATION
  Report Type: Report from Study
  Country: US (occurrence: US)
  Receive Date: 20160922
  Receipt Date: 20160922
  Transmission Date: 20161109
  Serious: Yes (Hospitalization, Other)
  Sender: FDA-Public Use
  Company Number: US-ABBVIE-16K-163-1729365-00

PATIENT
  Age: 67 Year
  Sex: Male

DRUGS (1)
  1. HUMIRA [Suspect]
     Active Substance: ADALIMUMAB
     Indication: CROHN^S DISEASE
     Route: 058
     Dates: start: 2011, end: 201608

REACTIONS (10)
  - Tremor [Not Recovered/Not Resolved]
  - Drug hypersensitivity [Recovering/Resolving]
  - Infection [Recovered/Resolved]
  - Purulent discharge [Not Recovered/Not Resolved]
  - Scab [Not Recovered/Not Resolved]
  - Crohn^s disease [Recovered/Resolved]
  - Eye irritation [Recovered/Resolved]
  - Vision blurred [Not Recovered/Not Resolved]
  - Rash pruritic [Recovering/Resolving]
  - Amnesia [Not Recovered/Not Resolved]

NARRATIVE: CASE EVENT DATE: 2011
